FAERS Safety Report 9494698 (Version 2)
Quarter: 2013Q3

REPORT INFORMATION
  Report Type: Spontaneous
  Country: FR (occurrence: FR)
  Receive Date: 20130903
  Receipt Date: 20130903
  Transmission Date: 20140515
  Serious: Yes (Hospitalization)
  Sender: FDA-Public Use
  Company Number: FR-ELI_LILLY_AND_COMPANY-FR201306004292

PATIENT
  Age: 58 Year
  Sex: Female

DRUGS (4)
  1. TERIPARATIDE [Suspect]
     Indication: OSTEOPOROSIS
     Dosage: 20 UG, QD
     Route: 058
     Dates: start: 20130215, end: 201306
  2. PLAQUENIL [Concomitant]
  3. LEVOTHYROX [Concomitant]
     Dosage: 150 UG, UNK
  4. EFFEXOR [Concomitant]

REACTIONS (1)
  - Rectal cancer [Unknown]
